FAERS Safety Report 19699736 (Version 3)
Quarter: 2021Q4

REPORT INFORMATION
  Report Type: Report from Study
  Country: DE (occurrence: DE)
  Receive Date: 20210813
  Receipt Date: 20211014
  Transmission Date: 20220304
  Serious: No
  Sender: FDA-Public Use
  Company Number: DE-DECIPHERA PHARMACEUTICALS LLC-2021DE000678

PATIENT
  Age: 79 Year
  Sex: Male
  Weight: 93 kg

DRUGS (39)
  1. RIPRETINIB [Suspect]
     Active Substance: RIPRETINIB
     Indication: Gastrointestinal stromal tumour
     Dosage: 150 MILLIGRAM, QD (ONCE IN THE MORNING)
     Route: 048
     Dates: start: 20200610, end: 20200617
  2. RIPRETINIB [Suspect]
     Active Substance: RIPRETINIB
     Dosage: 150 MILLIGRAM, QD (ONCE IN AFTERNOON/EVENING)
     Route: 048
     Dates: start: 20200622, end: 20200622
  3. RIPRETINIB [Suspect]
     Active Substance: RIPRETINIB
     Dosage: 100 MILLIGRAM, QD (ONCE IN MORNING)
     Route: 048
     Dates: start: 20200703, end: 20200707
  4. RIPRETINIB [Suspect]
     Active Substance: RIPRETINIB
     Dosage: 100 MILLIGRAM, QD (ONCE IN MORNING)
     Route: 048
     Dates: start: 20200714, end: 20200720
  5. RIPRETINIB [Suspect]
     Active Substance: RIPRETINIB
     Dosage: 100 MILLIGRAM, QD(ONCE IN MORNING)
     Route: 048
     Dates: start: 20200728, end: 20200812
  6. RIPRETINIB [Suspect]
     Active Substance: RIPRETINIB
     Dosage: 150 MILLIGRAM, QD (ONCE IN MORNING)
     Route: 048
     Dates: start: 20200623, end: 20200623
  7. RIPRETINIB [Suspect]
     Active Substance: RIPRETINIB
     Dosage: 150 MILLIGRAM, QD (ONCE IN AFTERNOON/EVENING)
     Route: 048
     Dates: start: 20200624, end: 20200624
  8. RIPRETINIB [Suspect]
     Active Substance: RIPRETINIB
     Dosage: 150 MILLIGRAM, QD (ONCE IN MORNING)
     Route: 048
     Dates: start: 20200625, end: 20200625
  9. RIPRETINIB [Suspect]
     Active Substance: RIPRETINIB
     Dosage: 150 MILLIGRAM, QD (ONCE IN AFTERNOON/EVENING)
     Route: 048
     Dates: start: 20200626, end: 20200626
  10. RIPRETINIB [Suspect]
     Active Substance: RIPRETINIB
     Dosage: 150 MILLIGRAM, QD (ONCE IN MORNING)
     Route: 048
     Dates: start: 20200627, end: 20200627
  11. RIPRETINIB [Suspect]
     Active Substance: RIPRETINIB
     Dosage: 150 MILLIGRAM, QD (ONCE IN AFTERNOON/EVENING)
     Route: 048
     Dates: start: 20200628, end: 20200628
  12. RIPRETINIB [Suspect]
     Active Substance: RIPRETINIB
     Dosage: 150 MILLIGRAM, QD (ONCE IN MORNING)
     Route: 048
     Dates: start: 20200629, end: 20200629
  13. RIPRETINIB [Suspect]
     Active Substance: RIPRETINIB
     Dosage: 50 MILLIGRAM, QD (ONCE IN MORNING)
     Route: 048
     Dates: start: 20200923, end: 20201002
  14. RIPRETINIB [Suspect]
     Active Substance: RIPRETINIB
     Dosage: 50 MILLIGRAM, QD (ONCE IN MORNING)
     Route: 048
     Dates: start: 20200910, end: 20200915
  15. RIPRETINIB [Suspect]
     Active Substance: RIPRETINIB
     Dosage: 50 MILLIGRAM, QD (ONCE IN MORNING)
     Route: 048
     Dates: start: 20201011, end: 20201111
  16. RIPRETINIB [Suspect]
     Active Substance: RIPRETINIB
     Dosage: 100 MILLIGRAM, QD (ONCE IN MORNING)
     Route: 048
     Dates: start: 20200713, end: 20200713
  17. RIPRETINIB [Suspect]
     Active Substance: RIPRETINIB
     Dosage: 100 MILLIGRAM, QD (ONCE IN MORNING)
     Route: 048
     Dates: start: 20200817, end: 20200817
  18. RIPRETINIB [Suspect]
     Active Substance: RIPRETINIB
     Dosage: 50 MILLIGRAM, QD (ONCE IN MORNING)
     Route: 048
     Dates: start: 20201119, end: 20201223
  19. RIPRETINIB [Suspect]
     Active Substance: RIPRETINIB
     Dosage: 50 MILLIGRAM, QD (ONCE IN MORNING)
     Route: 048
     Dates: start: 20201229, end: 20210121
  20. RIPRETINIB [Suspect]
     Active Substance: RIPRETINIB
     Dosage: 50 MILLIGRAM, QD (ONCE IN MORNING)
     Route: 048
     Dates: start: 20210126, end: 20210303
  21. RIPRETINIB [Suspect]
     Active Substance: RIPRETINIB
     Dosage: 50 MILLIGRAM, QD (ONCE IN MORNING)
     Route: 048
     Dates: start: 20210311, end: 20210317
  22. RIPRETINIB [Suspect]
     Active Substance: RIPRETINIB
     Dosage: 50 MILLIGRAM, QD (ONCE IN MORNING)
     Route: 048
     Dates: start: 20210323, end: 20210329
  23. RIPRETINIB [Suspect]
     Active Substance: RIPRETINIB
     Dosage: 50 MILLIGRAM, QD (ONCE IN MORNING)
     Route: 048
     Dates: start: 20210403, end: 20210512
  24. RIPRETINIB [Suspect]
     Active Substance: RIPRETINIB
     Dosage: 50 MILLIGRAM, QD (ONCE IN MORNING)
     Route: 048
     Dates: start: 20210517
  25. RIPRETINIB [Suspect]
     Active Substance: RIPRETINIB
     Dosage: UNK
     Route: 048
     Dates: start: 20210803
  26. FINASTERIDE [Concomitant]
     Active Substance: FINASTERIDE
     Indication: Benign prostatic hyperplasia
     Dosage: 5 MILLIGRAM
     Route: 048
     Dates: start: 1988
  27. TROSPIUM CHLORIDE [Concomitant]
     Active Substance: TROSPIUM CHLORIDE
     Indication: Benign prostatic hyperplasia
     Dosage: 15 MILLIGRAM
     Route: 048
     Dates: start: 2001
  28. TAMSULOSIN [Concomitant]
     Active Substance: TAMSULOSIN
     Indication: Benign prostatic hyperplasia
     Dosage: 0.4 MILLIGRAM, QD
     Route: 048
     Dates: start: 2001
  29. NOVALGIN (METAMIZOLE SODIUM) [Concomitant]
     Active Substance: METAMIZOLE SODIUM
     Indication: Pain prophylaxis
     Dosage: 30 GTT DROPS
     Route: 048
  30. PRONTOSAN WOUND [Concomitant]
     Indication: Skin ulcer
     Dosage: UNK GRAM
     Route: 062
     Dates: start: 20200708
  31. POLIHEXANIDE [Concomitant]
     Active Substance: POLIHEXANIDE
     Indication: Skin ulcer
     Dosage: UNK GRAM
     Route: 062
     Dates: start: 20200708
  32. SOLARAZE [Concomitant]
     Active Substance: DICLOFENAC SODIUM
     Indication: Actinic keratosis
     Dosage: UNKNOWN
     Route: 061
     Dates: start: 20200805
  33. ENOXAPARIN [Concomitant]
     Active Substance: ENOXAPARIN
     Indication: Thrombosis prophylaxis
     Dosage: 40 MILLIGRAM
     Route: 058
     Dates: start: 20200814
  34. ASPIRIN [Concomitant]
     Active Substance: ASPIRIN
     Indication: Thrombosis prophylaxis
     Dosage: 100 MILLIGRAM
     Route: 048
     Dates: start: 20200812
  35. CLOPIDOGREL [Concomitant]
     Active Substance: CLOPIDOGREL BISULFATE
     Indication: Thrombosis prophylaxis
     Dosage: 75 MILLIGRAM
     Route: 048
     Dates: start: 20200813
  36. ROSUVASTATIN [Concomitant]
     Active Substance: ROSUVASTATIN
     Indication: Blood cholesterol increased
     Dosage: 40 MILLIGRAM
     Route: 048
     Dates: start: 20200814
  37. EZETIMIBE [Concomitant]
     Active Substance: EZETIMIBE
     Indication: Blood cholesterol increased
     Dosage: 10 MILLIGRAM
     Route: 048
     Dates: start: 20200814
  38. CLOTRIMAZOLE [Concomitant]
     Active Substance: CLOTRIMAZOLE
     Indication: Intertrigo
     Dosage: 50 GRAM
     Route: 061
     Dates: start: 20210329
  39. LAVASORB [Concomitant]
     Indication: Erysipelas
     Dosage: 250 MILLILITER
     Route: 061
     Dates: start: 20210329

REACTIONS (1)
  - Squamous cell carcinoma of skin [Not Recovered/Not Resolved]

NARRATIVE: CASE EVENT DATE: 20210804
